FAERS Safety Report 6475810-X (Version None)
Quarter: 2009Q4

REPORT INFORMATION
  Report Type: 
  Country: None (occurrence: None)
  Receive Date: 20091204
  Receipt Date: 20091124
  Transmission Date: 20100525
  Serious: No
  Sender: FDA-Public Use
  Company Number: SI-ELI_LILLY_AND_COMPANY-SI200902001297

PATIENT
  Age: 50 Year
  Sex: Female

DRUGS (10)
  1. CYMBALTA [Suspect]
     Indication: DEPRESSION
     Dosage: 90 MG, DAILY (1/D)
     Route: 065
  2. CYMBALTA [Interacting]
     Dosage: 90 MG, DAILY (1/D)
     Route: 065
  3. LAMICTAL [Concomitant]
     Dosage: 100 MG, 2/D
     Route: 065
  4. SEROQUEL [Concomitant]
     Dosage: 50 MG, EACH MORNING
     Route: 065
  5. SEROQUEL [Concomitant]
     Dosage: 200 MG, EACH EVENING
     Route: 065
  6. LORAM [Concomitant]
     Dosage: 0.5 D/F, EACH MORNING
     Route: 065
  7. LORAM [Concomitant]
     Dosage: 0.5 D/F, AT NOON
  8. LORAM [Concomitant]
     Dosage: 1 D/F, EACH EVENING
     Route: 065
  9. ULTOP [Concomitant]
     Dosage: UNK, DAILY (1/D)
     Route: 065
  10. MEDROL [Concomitant]
     Dosage: 4 MG, UNKNOWN
     Route: 065

REACTIONS (2)
  - DRUG INTERACTION [None]
  - HEPATIC ENZYME INCREASED [None]
